FAERS Safety Report 8550881 (Version 26)
Quarter: 2018Q4

REPORT INFORMATION
  Report Type: Report from Study
  Country: CA (occurrence: CA)
  Receive Date: 20120508
  Receipt Date: 20181127
  Transmission Date: 20190205
  Serious: Yes (Disabling, Other)
  Sender: FDA-Public Use
  Company Number: PHHY2011CA47094

PATIENT
  Age: 67 Year
  Sex: Female

DRUGS (4)
  1. ZOLOFT [Concomitant]
     Active Substance: SERTRALINE HYDROCHLORIDE
     Indication: PRODUCT USED FOR UNKNOWN INDICATION
     Route: 065
  2. SANDOSTATIN LAR DEPOT [Suspect]
     Active Substance: OCTREOTIDE ACETATE
     Dosage: 30 MG, QMO (ONCE A MONTH)
     Route: 030
     Dates: start: 20110407, end: 20120502
  3. SANDOSTATIN LAR DEPOT [Suspect]
     Active Substance: OCTREOTIDE ACETATE
     Indication: ACROMEGALY
     Dosage: 20 MG, QMO (EVERY 4 WEEKS)
     Route: 030
     Dates: start: 20080729, end: 20110310
  4. SANDOSTATIN LAR DEPOT [Suspect]
     Active Substance: OCTREOTIDE ACETATE
     Dosage: 40 MG, QMO (EVERY 4 WEEKS)
     Route: 030
     Dates: start: 20120530

REACTIONS (49)
  - Neuropathy peripheral [Unknown]
  - Underdose [Unknown]
  - Skin ulcer [Unknown]
  - Muscle atrophy [Unknown]
  - Nasal congestion [Unknown]
  - Mood swings [Unknown]
  - Agitation [Unknown]
  - Gastrointestinal disorder [Unknown]
  - Joint swelling [Unknown]
  - Depression [Unknown]
  - Influenza [Unknown]
  - Psychological trauma [Unknown]
  - Accidental exposure to product [Unknown]
  - Wound [Unknown]
  - Anger [Unknown]
  - Arthralgia [Unknown]
  - Emotional disorder [Unknown]
  - Pain [Unknown]
  - Abscess [Unknown]
  - Depressed mood [Unknown]
  - Influenza like illness [Unknown]
  - Back pain [Unknown]
  - Violence-related symptom [Unknown]
  - Immune system disorder [Unknown]
  - Anxiety [Unknown]
  - Syringe issue [Unknown]
  - Sciatic nerve injury [Unknown]
  - Neoplasm [Recovered/Resolved]
  - Stress [Unknown]
  - Malaise [Unknown]
  - Insomnia [Unknown]
  - Feeling abnormal [Unknown]
  - Asthenia [Unknown]
  - Hypersensitivity [Unknown]
  - Nausea [Unknown]
  - Insulin-like growth factor increased [Unknown]
  - Radial nerve injury [Unknown]
  - Intervertebral disc protrusion [Unknown]
  - Muscular weakness [Unknown]
  - Injection site pain [Unknown]
  - Weight decreased [Unknown]
  - Needle issue [Unknown]
  - Sciatica [Not Recovered/Not Resolved]
  - Hypertension [Not Recovered/Not Resolved]
  - Frustration tolerance decreased [Unknown]
  - Decreased appetite [Unknown]
  - Fatigue [Unknown]
  - Dizziness [Unknown]
  - Mass [Unknown]

NARRATIVE: CASE EVENT DATE: 20140130
